FAERS Safety Report 11845315 (Version 1)
Quarter: 2015Q4

REPORT INFORMATION
  Report Type: Spontaneous
  Country: US (occurrence: US)
  Receive Date: 20151217
  Receipt Date: 20151217
  Transmission Date: 20160305
  Serious: Yes (Other)
  Sender: FDA-Public Use
  Company Number: US-BAYER-2015-489422

PATIENT
  Age: 28 Year
  Sex: Female

DRUGS (1)
  1. YAZ [Suspect]
     Active Substance: DROSPIRENONE\ETHINYL ESTRADIOL

REACTIONS (4)
  - Cerebral small vessel ischaemic disease [None]
  - Transient ischaemic attack [None]
  - Embolism arterial [None]
  - Cerebral thrombosis [None]

NARRATIVE: CASE EVENT DATE: 200812
